FAERS Safety Report 9207379 (Version 1)
Quarter: 2013Q2

REPORT INFORMATION
  Report Type: Report from Study
  Country: CA (occurrence: CA)
  Receive Date: 20130403
  Receipt Date: 20130403
  Transmission Date: 20140414
  Serious: Yes (Death, Other)
  Sender: FDA-Public Use
  Company Number: CA-ROCHE-1046580

PATIENT
  Sex: 0

DRUGS (4)
  1. BEVACIZUMAB [Suspect]
     Indication: COLORECTAL CANCER
     Dosage: ON DAY 1
     Route: 042
  2. CAPECITABINE [Suspect]
     Indication: COLORECTAL CANCER
     Dosage: FOR DAY 2 TO DAY 15
     Route: 048
  3. IRINOTECAN [Suspect]
     Indication: COLORECTAL CANCER
     Dosage: ON DAY 1
     Route: 042
  4. OXALIPLATIN [Suspect]
     Indication: COLORECTAL CANCER
     Route: 042

REACTIONS (12)
  - Myocardial infarction [Fatal]
  - Colitis [Fatal]
  - Neutropenia [Unknown]
  - Embolism [Unknown]
  - Diarrhoea [Unknown]
  - Febrile neutropenia [Unknown]
  - Leukopenia [Unknown]
  - Thrombocytopenia [Unknown]
  - Nausea [Unknown]
  - Vomiting [Unknown]
  - Fatigue [Unknown]
  - Dehydration [Unknown]
